FAERS Safety Report 7378730-1 (Version None)
Quarter: 2011Q1

REPORT INFORMATION
  Report Type: 
  Country: None (occurrence: None)
  Receive Date: 20110328
  Receipt Date: 20110317
  Transmission Date: 20110831
  Serious: Yes (Hospitalization)
  Sender: FDA-Public Use
  Company Number: US-BAXTER-2011BH005717

PATIENT
  Age: 61 Year
  Sex: Male

DRUGS (3)
  1. DIANEAL [Suspect]
     Indication: PERITONEAL DIALYSIS
     Route: 033
     Dates: start: 20110101
  2. PS PRODUCT NOT LISTED [Concomitant]
     Indication: HYPERTENSION
     Route: 065
  3. COUMADIN [Concomitant]
     Indication: CARDIAC VALVE PROSTHESIS USER
     Route: 065
     Dates: end: 20110101

REACTIONS (2)
  - HAEMORRHAGE [None]
  - THROMBOSIS [None]
